FAERS Safety Report 10788089 (Version 1)
Quarter: 2015Q1

REPORT INFORMATION
  Report Type: Spontaneous
  Country: US (occurrence: US)
  Receive Date: 20150212
  Receipt Date: 20150212
  Transmission Date: 20150721
  Serious: Yes (Death)
  Sender: FDA-Public Use
  Company Number: US-CIPLA LTD.-2015US00970

PATIENT

DRUGS (2)
  1. GEMCITABINE [Suspect]
     Active Substance: GEMCITABINE\GEMCITABINE HYDROCHLORIDE
     Indication: PANCREATIC CARCINOMA METASTATIC
     Dosage: 1000 MG/M2 ON DAYS 1, 8, AND 15 OF EACH 28-DAY CYCLE
  2. GANITUMAB [Suspect]
     Active Substance: GANITUMAB
     Indication: PANCREATIC CARCINOMA METASTATIC
     Dosage: 12 MG/KG OR 20 MG/KG ON DAYS 1 AND 15 OF EACH 28 DAY CYCLE

REACTIONS (1)
  - Thrombotic thrombocytopenic purpura [Fatal]
